FAERS Safety Report 7545688-1 (Version None)
Quarter: 2011Q2

REPORT INFORMATION
  Report Type: 
  Country: None (occurrence: None)
  Receive Date: 20110613
  Receipt Date: 20110613
  Transmission Date: 20111010
  Serious: Yes (Life-Threatening)
  Sender: FDA-Public Use
  Company Number: None

PATIENT
  Age: 89 Year
  Sex: Male
  Weight: 87.8 kg

DRUGS (2)
  1. VANCOMYCIN [Suspect]
     Indication: URINARY TRACT INFECTION
     Dosage: 1250MG EVERY 24 HOURS IV
     Route: 042
     Dates: start: 20110602, end: 20110606
  2. VANCOMYCIN [Suspect]
     Indication: SEPSIS
     Dosage: 1250MG EVERY 24 HOURS IV
     Route: 042
     Dates: start: 20110602, end: 20110606

REACTIONS (1)
  - THROMBOCYTOPENIA [None]
